FAERS Safety Report 10581727 (Version 1)
Quarter: 2014Q4

REPORT INFORMATION
  Report Type: Spontaneous
  Country: IN (occurrence: IN)
  Receive Date: 20141113
  Receipt Date: 20141113
  Transmission Date: 20150529
  Serious: Yes (Other)
  Sender: FDA-Public Use
  Company Number: PHHY2014IN143850

PATIENT
  Age: 35 Year
  Sex: Female

DRUGS (2)
  1. ATENOLOL. [Suspect]
     Active Substance: ATENOLOL
     Indication: PRODUCT USED FOR UNKNOWN INDICATION
     Route: 065
  2. AMLODIPINE BESYLATE. [Suspect]
     Active Substance: AMLODIPINE BESYLATE
     Indication: PRODUCT USED FOR UNKNOWN INDICATION
     Dosage: 100 DF, UNK
     Route: 065

REACTIONS (12)
  - Tachypnoea [Recovering/Resolving]
  - Metabolic acidosis [Recovering/Resolving]
  - Anuria [Recovering/Resolving]
  - Intentional overdose [Recovered/Resolved]
  - Cerebral hypoperfusion [Recovering/Resolving]
  - Suicidal ideation [Recovering/Resolving]
  - Depressed level of consciousness [Recovering/Resolving]
  - Hypotension [Recovered/Resolved]
  - Blood pressure decreased [Recovered/Resolved]
  - Tachycardia [Recovering/Resolving]
  - Atrioventricular block second degree [Recovering/Resolving]
  - Acute kidney injury [Recovering/Resolving]
